FAERS Safety Report 12257266 (Version 13)
Quarter: 2017Q4

REPORT INFORMATION
  Report Type: Spontaneous
  Country: US (occurrence: US)
  Receive Date: 20160412
  Receipt Date: 20171214
  Transmission Date: 20180320
  Serious: Yes (Hospitalization, Disabling)
  Sender: FDA-Public Use
  Company Number: US-ACTELION PHARMACEUTICALS US, INC.-A-US2016-132869

PATIENT
  Age: 45 Year
  Sex: Female

DRUGS (37)
  1. ORENITRAM [Suspect]
     Active Substance: TREPROSTINIL
     Indication: PRODUCT USED FOR UNKNOWN INDICATION
     Dosage: 1 MG, TID
     Route: 048
     Dates: start: 20160326, end: 20160328
  2. TYLENOL [Concomitant]
     Active Substance: ACETAMINOPHEN
  3. NABUMETONE. [Concomitant]
     Active Substance: NABUMETONE
  4. RANITIDINE. [Concomitant]
     Active Substance: RANITIDINE
  5. REMODULIN [Suspect]
     Active Substance: TREPROSTINIL
     Indication: PRODUCT USED FOR UNKNOWN INDICATION
     Dosage: UNK
     Route: 065
  6. MECLIZINE [Concomitant]
     Active Substance: MECLIZINE HYDROCHLORIDE
  7. LORAZEPAM. [Concomitant]
     Active Substance: LORAZEPAM
  8. PLAQUENIL [Concomitant]
     Active Substance: HYDROXYCHLOROQUINE SULFATE
  9. ONDANSETRON [Concomitant]
     Active Substance: ONDANSETRON
  10. OPSUMIT [Suspect]
     Active Substance: MACITENTAN
     Indication: PULMONARY ARTERIAL HYPERTENSION
     Dosage: 10 MG, QD
     Route: 048
     Dates: start: 20160223
  11. VALIUM [Concomitant]
     Active Substance: DIAZEPAM
  12. MELATONIN [Concomitant]
     Active Substance: MELATONIN
  13. HEPARIN [Concomitant]
     Active Substance: HEPARIN SODIUM
     Dosage: UNK
  14. ASPIRIN. [Concomitant]
     Active Substance: ASPIRIN
     Dosage: UNK
  15. SERTRALINE [Concomitant]
     Active Substance: SERTRALINE HYDROCHLORIDE
  16. ECOTRIN [Concomitant]
     Active Substance: ASPIRIN
  17. REMERON [Concomitant]
     Active Substance: MIRTAZAPINE
  18. MIRTAZAPINE. [Concomitant]
     Active Substance: MIRTAZAPINE
  19. VANCOMYCIN [Concomitant]
     Active Substance: VANCOMYCIN
  20. NORCO [Concomitant]
     Active Substance: ACETAMINOPHEN\HYDROCODONE BITARTRATE
  21. ORENITRAM [Suspect]
     Active Substance: TREPROSTINIL
     Dosage: UNK
     Route: 048
     Dates: end: 20160326
  22. ORENITRAM [Suspect]
     Active Substance: TREPROSTINIL
     Dosage: 0.875 MG, TID
     Route: 048
     Dates: start: 20160329
  23. FUROSEMIDE. [Concomitant]
     Active Substance: FUROSEMIDE
     Dosage: UNK
  24. HYDROXYCHLOROQUINE [Concomitant]
     Active Substance: HYDROXYCHLOROQUINE
     Dosage: UNK
  25. LIDOCAINE. [Concomitant]
     Active Substance: LIDOCAINE
  26. HYDROCODONE [Concomitant]
     Active Substance: HYDROCODONE
  27. FAMOTIDINE. [Concomitant]
     Active Substance: FAMOTIDINE
  28. PNEUMOCOCCAL VACCINE POLYVALENT NOS [Concomitant]
     Active Substance: PNEUMOCOCCAL VACCINE POLYVALENT
  29. ZOLPIDEM [Concomitant]
     Active Substance: ZOLPIDEM\ZOLPIDEM TARTRATE
  30. PREGABALIN. [Concomitant]
     Active Substance: PREGABALIN
  31. ORENITRAM [Suspect]
     Active Substance: TREPROSTINIL
     Dosage: 4 MG, UNK
     Route: 065
  32. ORENITRAM [Suspect]
     Active Substance: TREPROSTINIL
     Dosage: 4.625 UNK, UNK
     Route: 065
  33. ORENITRAM [Suspect]
     Active Substance: TREPROSTINIL
     Dosage: 4.5 UNK, UNK
     Route: 065
  34. PREDNISONE. [Concomitant]
     Active Substance: PREDNISONE
     Dosage: UNK
  35. PANTOPRAZOLE [Concomitant]
     Active Substance: PANTOPRAZOLE
     Dosage: UNK
  36. GABAPENTIN. [Concomitant]
     Active Substance: GABAPENTIN
     Dosage: UNK
  37. CLINDAMYCIN. [Concomitant]
     Active Substance: CLINDAMYCIN

REACTIONS (34)
  - Weight decreased [Not Recovered/Not Resolved]
  - Blood albumin decreased [Not Recovered/Not Resolved]
  - Dyspnoea exertional [Unknown]
  - Dizziness [Not Recovered/Not Resolved]
  - Chest pain [Recovered/Resolved]
  - Right ventricular failure [Unknown]
  - Abdominal wall disorder [Recovered/Resolved]
  - Dyspnoea [Not Recovered/Not Resolved]
  - Device infusion issue [Recovered/Resolved]
  - Presyncope [Unknown]
  - Gastrointestinal disorder [Not Recovered/Not Resolved]
  - Decreased appetite [Not Recovered/Not Resolved]
  - Vomiting [Not Recovered/Not Resolved]
  - Diarrhoea [Recovering/Resolving]
  - Headache [Recovering/Resolving]
  - Crying [Unknown]
  - Injection site erythema [Recovered/Resolved]
  - Hyperhidrosis [Recovered/Resolved]
  - Depression [Unknown]
  - Abdominal pain upper [Not Recovered/Not Resolved]
  - Palpitations [Not Recovered/Not Resolved]
  - Pleural effusion [Unknown]
  - Systemic lupus erythematosus [Unknown]
  - Nausea [Not Recovered/Not Resolved]
  - Abdominal pain [Recovered/Resolved]
  - Rash [Recovered/Resolved]
  - Cellulitis [Not Recovered/Not Resolved]
  - Insomnia [Not Recovered/Not Resolved]
  - Anaemia [Unknown]
  - Injection site warmth [Recovered/Resolved]
  - Chest discomfort [Recovered/Resolved]
  - Pulmonary hypertension [Unknown]
  - Heart rate increased [Recovered/Resolved]
  - Hypovolaemia [Unknown]

NARRATIVE: CASE EVENT DATE: 20160309
